FAERS Safety Report 15924861 (Version 1)
Quarter: 2019Q1

REPORT INFORMATION
  Report Type: Spontaneous
  Country: US (occurrence: US)
  Receive Date: 20190115
  Receipt Date: 20190115
  Transmission Date: 20190417
  Serious: No
  Sender: FDA-Public Use
  Company Number: None

PATIENT
  Age: 75 Year
  Sex: Female
  Weight: 58.97 kg

DRUGS (5)
  1. FORTEO [Suspect]
     Active Substance: TERIPARATIDE
     Indication: OSTEOPOROSIS
     Route: 058
     Dates: start: 201708
  2. FORTEO [Suspect]
     Active Substance: TERIPARATIDE
     Indication: DRUG THERAPY
  3. FORTEO [Suspect]
     Active Substance: TERIPARATIDE
     Indication: FRACTURED SACRUM
  4. FORTEO [Suspect]
     Active Substance: TERIPARATIDE
     Indication: DRUG THERAPY
     Route: 058
     Dates: start: 201708
  5. FORTEO [Suspect]
     Active Substance: TERIPARATIDE
     Indication: FRACTURED SACRUM
     Route: 058
     Dates: start: 201708

REACTIONS (1)
  - Post procedural complication [None]
